FAERS Safety Report 17605861 (Version 1)
Quarter: 2020Q1

REPORT INFORMATION
  Report Type: Spontaneous
  Country: US (occurrence: US)
  Receive Date: 20200331
  Receipt Date: 20200331
  Transmission Date: 20200409
  Serious: No
  Sender: FDA-Public Use
  Company Number: US-PFIZER INC-2020129975

PATIENT
  Age: 5 Decade
  Sex: Female
  Weight: 81.65 kg

DRUGS (1)
  1. METHOTREXATE SODIUM. [Suspect]
     Active Substance: METHOTREXATE SODIUM
     Indication: RHEUMATOID ARTHRITIS
     Dosage: UNKNOWN DOSE, EVERY TWO WEEKS

REACTIONS (2)
  - Vision blurred [Recovered/Resolved]
  - Nausea [Recovered/Resolved]
